FAERS Safety Report 8924362 (Version 1)
Quarter: 2012Q4

REPORT INFORMATION
  Report Type: 
  Country: US (occurrence: US)
  Receive Date: 20121126
  Receipt Date: 20121126
  Transmission Date: 20130627
  Serious: No
  Sender: FDA-Public Use
  Company Number: US-MYLANLABS-2011S1026090

PATIENT
  Sex: Male

DRUGS (7)
  1. CLONAZEPAM [Suspect]
     Indication: INSOMNIA
     Route: 048
     Dates: start: 201102, end: 201111
  2. CLONAZEPAM [Suspect]
     Indication: INSOMNIA
     Route: 048
     Dates: start: 201102
  3. CELEXA [Concomitant]
     Route: 048
  4. LISINOPRIL HYDROCHLORTHIAZID [Concomitant]
     Dosage: 20mg/25mg
     Route: 048
  5. ZANAFLEX [Concomitant]
     Route: 048
  6. NEURONTIN [Concomitant]
     Route: 048
  7. PERCOCET [Concomitant]
     Dosage: 10mg/325mg
     Route: 048

REACTIONS (1)
  - False negative investigation result [Not Recovered/Not Resolved]
